FAERS Safety Report 22646637 (Version 1)
Quarter: 2023Q2

REPORT INFORMATION
  Report Type: Spontaneous
  Country: US (occurrence: None)
  Receive Date: 20230626
  Receipt Date: 20230626
  Transmission Date: 20230722
  Serious: No
  Sender: FDA-Public Use
  Company Number: None

PATIENT

DRUGS (2)
  1. KETAMINE HYDROCHLORIDE [Suspect]
     Active Substance: KETAMINE HYDROCHLORIDE
  2. EPINEPHRINE BITARTRATE\LIDOCAINE HYDROCHLORIDE\TETRACAINE HYDROCHLORID [Suspect]
     Active Substance: EPINEPHRINE BITARTRATE\LIDOCAINE HYDROCHLORIDE\TETRACAINE HYDROCHLORIDE

REACTIONS (1)
  - Product packaging confusion [None]
